FAERS Safety Report 4840151-0 (Version None)
Quarter: 2005Q4

REPORT INFORMATION
  Report Type: 
  Country: None (occurrence: None)
  Receive Date: 20051125
  Receipt Date: 20051115
  Transmission Date: 20060501
  Serious: Yes (Other)
  Sender: FDA-Public Use
  Company Number: 2005155924

PATIENT
  Age: 49 Year
  Sex: Female

DRUGS (1)
  1. CALADRYL [Suspect]
     Indication: ACCIDENTAL EXPOSURE
     Dosage: UNKNOWN AMOUNT ONCE, ORAL
     Route: 048
     Dates: start: 20051115, end: 20051115

REACTIONS (3)
  - ACCIDENTAL EXPOSURE [None]
  - INCORRECT ROUTE OF DRUG ADMINISTRATION [None]
  - MEMORY IMPAIRMENT [None]
